FAERS Safety Report 9402348 (Version 1)
Quarter: 2013Q3

REPORT INFORMATION
  Report Type: Spontaneous
  Country: CN (occurrence: CN)
  Receive Date: 20130716
  Receipt Date: 20130716
  Transmission Date: 20140515
  Serious: Yes (Other)
  Sender: FDA-Public Use
  Company Number: CN-BAXTER-2013BAX026633

PATIENT
  Age: 53 Year
  Sex: Male
  Weight: 51 kg

DRUGS (2)
  1. 0.9% SODIUM CHLORIDE INJECTION [Suspect]
     Indication: INFECTION
     Route: 041
     Dates: start: 20120627, end: 20120627
  2. CEFPIRAMIDE SODIUM [Suspect]
     Indication: INFECTION
     Route: 041
     Dates: start: 20120627, end: 20120627

REACTIONS (1)
  - Hypersensitivity [Recovering/Resolving]
